FAERS Safety Report 9060298 (Version 1)
Quarter: 2013Q1

REPORT INFORMATION
  Report Type: Spontaneous
  Country: US (occurrence: US)
  Receive Date: 20130211
  Receipt Date: 20130211
  Transmission Date: 20140127
  Serious: No
  Sender: FDA-Public Use
  Company Number: US-PFIZER INC-2013022464

PATIENT
  Age: 68 Year
  Sex: Female
  Weight: 92.97 kg

DRUGS (6)
  1. PREMPRO [Suspect]
     Indication: MENOPAUSAL SYMPTOMS
     Dosage: 0.45 MG/1.5 MG DAILY
     Dates: start: 2002, end: 201211
  2. PREMPRO [Suspect]
     Dosage: 0.45 MG/1.5 MG DAILY
     Dates: start: 2012
  3. NAPROXEN SODIUM [Suspect]
     Indication: ARTHRITIS
     Dosage: 500 MG, 2X/DAY
  4. FELODIPINE [Concomitant]
     Indication: HYPERTENSION
     Dosage: 5 MG, DAILY
  5. FLUOXETINE [Concomitant]
     Indication: DEPRESSION
     Dosage: 20 MG, DAILY
  6. LOVASTATIN [Concomitant]
     Indication: BLOOD CHOLESTEROL ABNORMAL
     Dosage: 20 MG, DAILY

REACTIONS (1)
  - Arthritis [Recovering/Resolving]
